FAERS Safety Report 10254885 (Version 1)
Quarter: 2014Q2

REPORT INFORMATION
  Report Type: Spontaneous
  Country: US (occurrence: US)
  Receive Date: 20140624
  Receipt Date: 20140624
  Transmission Date: 20141212
  Serious: No
  Sender: FDA-Public Use
  Company Number: US-SHIRE-US201403233

PATIENT
  Age: 8 Year
  Sex: Male
  Weight: 26.58 kg

DRUGS (4)
  1. VYVANSE [Suspect]
     Indication: ATTENTION DEFICIT/HYPERACTIVITY DISORDER
     Dosage: 30 MG, 1X/DAY:QD
     Route: 048
     Dates: start: 20140619
  2. VYVANSE [Suspect]
     Indication: TOURETTE^S DISORDER
  3. INTUNIV [Concomitant]
     Indication: ATTENTION DEFICIT/HYPERACTIVITY DISORDER
     Dosage: UNK, UNKNOWN
     Route: 048
  4. INTUNIV [Concomitant]
     Indication: TOURETTE^S DISORDER

REACTIONS (5)
  - Paranoia [Not Recovered/Not Resolved]
  - Headache [Not Recovered/Not Resolved]
  - Logorrhoea [Not Recovered/Not Resolved]
  - Affect lability [Not Recovered/Not Resolved]
  - Drug effect increased [Not Recovered/Not Resolved]
